FAERS Safety Report 17680119 (Version 1)
Quarter: 2020Q2

REPORT INFORMATION
  Report Type: Spontaneous
  Country: BE (occurrence: BE)
  Receive Date: 20200417
  Receipt Date: 20200417
  Transmission Date: 20200714
  Serious: Yes (Hospitalization)
  Sender: FDA-Public Use
  Company Number: None

PATIENT
  Age: 40 Year
  Sex: Male
  Weight: 101.9 kg

DRUGS (3)
  1. IFOSFAMIDE. [Suspect]
     Active Substance: IFOSFAMIDE
     Dates: end: 20200323
  2. CISPLATIN. [Suspect]
     Active Substance: CISPLATIN
     Dates: end: 20200323
  3. TAXOL [Suspect]
     Active Substance: PACLITAXEL
     Dates: end: 20200323

REACTIONS (4)
  - Coronavirus infection [None]
  - Coronavirus test positive [None]
  - Pyrexia [None]
  - Cough [None]

NARRATIVE: CASE EVENT DATE: 20200410
